FAERS Safety Report 11842547 (Version 1)
Quarter: 2015Q4

REPORT INFORMATION
  Report Type: Spontaneous
  Country: US (occurrence: US)
  Receive Date: 20151216
  Receipt Date: 20151216
  Transmission Date: 20160305
  Serious: No
  Sender: FDA-Public Use
  Company Number: US-RECKITT BENCKISER HEALTHCARE INT LIMITED-RB-08435-2015

PATIENT
  Age: 20 Year
  Sex: Male

DRUGS (2)
  1. ROBITUSSIN (GUAIFENESIN) [Suspect]
     Active Substance: GUAIFENESIN
     Indication: PRODUCT USED FOR UNKNOWN INDICATION
     Dosage: UNK
     Route: 065
     Dates: start: 20151002
  2. DELSYM [Suspect]
     Active Substance: DEXTROMETHORPHAN
     Indication: PRODUCT USED FOR UNKNOWN INDICATION
     Dosage: UNK UNK, SINGLE
     Route: 065
     Dates: start: 20151002

REACTIONS (6)
  - Disorientation [Unknown]
  - Erythema [Unknown]
  - Hypoaesthesia oral [Unknown]
  - Skin disorder [Unknown]
  - Overdose [Unknown]
  - Skin discolouration [Unknown]

NARRATIVE: CASE EVENT DATE: 201510
